FAERS Safety Report 6901438-0 (Version None)
Quarter: 2010Q3

REPORT INFORMATION
  Report Type: 
  Country: None (occurrence: None)
  Receive Date: 20100803
  Receipt Date: 20080123
  Transmission Date: 20110219
  Serious: No
  Sender: FDA-Public Use
  Company Number: US-PFIZER INC-2008008326

PATIENT
  Sex: Female

DRUGS (6)
  1. LYRICA [Suspect]
     Indication: FIBROMYALGIA
     Route: 048
     Dates: start: 20080122
  2. ACTOS [Concomitant]
  3. LANTUS [Concomitant]
  4. GLUCOPHAGE XR [Concomitant]
  5. QUINAPRIL [Concomitant]
     Indication: HYPERTENSION
  6. DRUG, UNSPECIFIED [Concomitant]

REACTIONS (3)
  - CRYING [None]
  - DIZZINESS [None]
  - HEADACHE [None]
